FAERS Safety Report 9394940 (Version 1)
Quarter: 2013Q3

REPORT INFORMATION
  Report Type: Spontaneous
  Country: US (occurrence: US)
  Receive Date: 20130711
  Receipt Date: 20130711
  Transmission Date: 20140515
  Serious: Yes (Death, Other)
  Sender: FDA-Public Use
  Company Number: US-COVIDIEN/TYCO HEALTHCARE/MALLINCKRODT-T201202983

PATIENT
  Age: 47 Year
  Sex: Male

DRUGS (1)
  1. OXYCODONE [Suspect]
     Dosage: UNK

REACTIONS (2)
  - Overdose [Fatal]
  - Drug diversion [Unknown]
